FAERS Safety Report 17186952 (Version 2)
Quarter: 2020Q1

REPORT INFORMATION
  Report Type: Spontaneous
  Country: US (occurrence: US)
  Receive Date: 20191220
  Receipt Date: 20200204
  Transmission Date: 20200409
  Serious: Yes (Hospitalization, Other)
  Sender: FDA-Public Use
  Company Number: US-PFIZER INC-2019548657

PATIENT
  Age: 60 Year
  Sex: Female

DRUGS (1)
  1. RAPAMUNE [Suspect]
     Active Substance: SIROLIMUS
     Indication: RENAL TRANSPLANT
     Dosage: 0.5 MG, 1X/DAY (ALSO REPORTED AS 0.5 MG, DAILY)
     Route: 048

REACTIONS (3)
  - Colitis ulcerative [Unknown]
  - Pyelonephritis [Unknown]
  - Irritable bowel syndrome [Unknown]
